FAERS Safety Report 22280093 (Version 1)
Quarter: 2023Q2

REPORT INFORMATION
  Report Type: Spontaneous
  Country: PL (occurrence: PL)
  Receive Date: 20230503
  Receipt Date: 20230503
  Transmission Date: 20230722
  Serious: Yes (Hospitalization, Other)
  Sender: FDA-Public Use
  Company Number: PL-MYLANLABS-2023M1046384

PATIENT
  Age: 36 Year
  Sex: Male

DRUGS (2)
  1. EPLERENONE [Suspect]
     Active Substance: EPLERENONE
     Indication: Retinoschisis
     Dosage: 25 MILLIGRAM
     Route: 065
  2. EPLERENONE [Suspect]
     Active Substance: EPLERENONE
     Indication: Hypertension

REACTIONS (7)
  - Malignant hypertension [Unknown]
  - Hyperparathyroidism secondary [Unknown]
  - Retinopathy hypertensive [Unknown]
  - Renal failure [Unknown]
  - Renal cyst [Unknown]
  - IgA nephropathy [Unknown]
  - Drug ineffective [Unknown]
